FAERS Safety Report 18373515 (Version 1)
Quarter: 2020Q4

REPORT INFORMATION
  Report Type: Spontaneous
  Country: FR (occurrence: FR)
  Receive Date: 20201012
  Receipt Date: 20201012
  Transmission Date: 20210114
  Serious: Yes (Death, Life-Threatening, Hospitalization, Other)
  Sender: FDA-Public Use
  Company Number: FR-MYLANLABS-2020M1085361

PATIENT
  Age: 60 Year
  Sex: Male

DRUGS (3)
  1. AZACITIDINE. [Suspect]
     Active Substance: AZACITIDINE
     Dosage: 7 DAYS OF ADMINISTRATION 75 MG/M2/DAY EVERY 28 DAYS
     Route: 042
  2. AZACITIDINE. [Suspect]
     Active Substance: AZACITIDINE
     Indication: MYELODYSPLASTIC SYNDROME
     Dosage: 7 DAYS OF ADMINISTRATION 75 MG/M2/DAY EVERY 28 DAYS
     Route: 042
  3. AZACITIDINE. [Suspect]
     Active Substance: AZACITIDINE
     Dosage: 7 DAYS OF ADMINISTRATION 75 MG/M2/DAY EVERY 28 DAYS
     Route: 042

REACTIONS (17)
  - Leukopenia [Fatal]
  - Large intestine infection [Not Recovered/Not Resolved]
  - Aplasia [Not Recovered/Not Resolved]
  - Chills [Not Recovered/Not Resolved]
  - Oxygen saturation decreased [Not Recovered/Not Resolved]
  - Multiple organ dysfunction syndrome [Fatal]
  - Anaemia [Fatal]
  - Thrombocytopenia [Fatal]
  - Sepsis [Fatal]
  - Haemoptysis [Not Recovered/Not Resolved]
  - Acute respiratory distress syndrome [Not Recovered/Not Resolved]
  - Pyrexia [Not Recovered/Not Resolved]
  - Hypotension [Not Recovered/Not Resolved]
  - Neutropenia [Fatal]
  - Productive cough [Not Recovered/Not Resolved]
  - Melaena [Not Recovered/Not Resolved]
  - Mucosal inflammation [Not Recovered/Not Resolved]
